FAERS Safety Report 21247770 (Version 1)
Quarter: 2022Q3

REPORT INFORMATION
  Report Type: Spontaneous
  Country: US (occurrence: None)
  Receive Date: 20220824
  Receipt Date: 20220824
  Transmission Date: 20221026
  Serious: No
  Sender: FDA-Public Use
  Company Number: US-Emmaus Medical, Inc.-EMM202206-000117

PATIENT
  Age: 10 Year
  Sex: Male
  Weight: 49.895 kg

DRUGS (10)
  1. ENDARI [Suspect]
     Active Substance: GLUTAMINE
     Indication: Sickle cell anaemia with crisis
     Dosage: 10 G (2 PACKETS)
     Route: 048
     Dates: start: 20220621
  2. TIZANIDINE [Concomitant]
     Active Substance: TIZANIDINE
     Indication: Muscle relaxant therapy
     Dosage: 2 MG
     Route: 065
  3. HYDROXYUREA [Concomitant]
     Active Substance: HYDROXYUREA
     Indication: Sickle cell anaemia with crisis
     Dosage: 1500 MG
     Route: 065
  4. HYDROXYUREA [Concomitant]
     Active Substance: HYDROXYUREA
     Indication: Pain
  5. AMOXICILLIN [Concomitant]
     Active Substance: AMOXICILLIN
     Indication: Infection prophylaxis
     Dosage: 250 MG
     Route: 065
  6. AMOXICILLIN [Concomitant]
     Active Substance: AMOXICILLIN
     Indication: Pain
  7. ALBUTEROL [Concomitant]
     Active Substance: ALBUTEROL
     Indication: Asthma
     Dosage: 90 MCG (2 PUFFS)
     Route: 065
  8. FLOVENT [Concomitant]
     Active Substance: FLUTICASONE PROPIONATE
     Indication: Asthma
     Dosage: 110 MCG (2 PUFFS)
     Route: 065
  9. CLONIDINE [Concomitant]
     Active Substance: CLONIDINE
     Indication: Anxiety
     Dosage: UNKNOWN
     Route: 065
  10. CLONIDINE [Concomitant]
     Active Substance: CLONIDINE
     Indication: Pain

REACTIONS (2)
  - Pain [Not Recovered/Not Resolved]
  - Insomnia [Not Recovered/Not Resolved]

NARRATIVE: CASE EVENT DATE: 20220701
